FAERS Safety Report 5472791-2 (Version None)
Quarter: 2007Q4

REPORT INFORMATION
  Report Type: 
  Country: None (occurrence: None)
  Receive Date: 20071001
  Receipt Date: 20061017
  Transmission Date: 20080405
  Serious: No
  Sender: FDA-Public Use
  Company Number: US-ASTRAZENECA-2006UW20063

PATIENT
  Sex: Female

DRUGS (1)
  1. ARIMIDEX [Suspect]
     Route: 048
     Dates: start: 20030101

REACTIONS (5)
  - ALOPECIA [None]
  - DRY SKIN [None]
  - ONYCHOCLASIS [None]
  - OSTEOPOROSIS [None]
  - WEIGHT DECREASED [None]
